FAERS Safety Report 17805281 (Version 1)
Quarter: 2020Q2

REPORT INFORMATION
  Report Type: Spontaneous
  Country: CN (occurrence: CN)
  Receive Date: 20200520
  Receipt Date: 20200520
  Transmission Date: 20200714
  Serious: Yes (Other)
  Sender: FDA-Public Use
  Company Number: CN-ROCHE-2598761

PATIENT
  Age: 70 Year
  Sex: Female

DRUGS (31)
  1. MABTHERA [Suspect]
     Active Substance: RITUXIMAB
     Dosage: DAY 0
     Route: 065
     Dates: start: 20191030
  2. MABTHERA [Suspect]
     Active Substance: RITUXIMAB
     Route: 065
     Dates: start: 20191211
  3. CYCLOPHOSPHAMIDE. [Concomitant]
     Active Substance: CYCLOPHOSPHAMIDE
     Route: 065
     Dates: start: 20191120
  4. VINDESINE [Concomitant]
     Active Substance: VINDESINE
     Dosage: DAY 1
     Route: 065
     Dates: start: 20190917
  5. CYCLOPHOSPHAMIDE. [Concomitant]
     Active Substance: CYCLOPHOSPHAMIDE
     Dosage: DAY 1
     Route: 065
     Dates: start: 20191030
  6. LIPOSOMAL DOXORUBICIN HYDROCHLORIDE [Concomitant]
     Active Substance: DOXORUBICIN HYDROCHLORIDE
     Route: 065
     Dates: start: 20191211
  7. VINDESINE [Concomitant]
     Active Substance: VINDESINE
     Route: 065
     Dates: start: 20191211
  8. PREDNISONE. [Concomitant]
     Active Substance: PREDNISONE
     Dosage: DAY 1-5
     Route: 065
     Dates: start: 20191030
  9. IRBESARTAN. [Concomitant]
     Active Substance: IRBESARTAN
     Indication: HYPERTENSION
     Dosage: DF=TABLET
     Route: 048
  10. MABTHERA [Suspect]
     Active Substance: RITUXIMAB
     Dosage: DAY 0
     Route: 065
     Dates: start: 20190917
  11. CYCLOPHOSPHAMIDE. [Concomitant]
     Active Substance: CYCLOPHOSPHAMIDE
     Route: 065
     Dates: start: 20191211
  12. LIPOSOMAL DOXORUBICIN HYDROCHLORIDE [Concomitant]
     Active Substance: DOXORUBICIN HYDROCHLORIDE
     Dosage: DAY1
     Route: 065
     Dates: start: 20190917
  13. LIPOSOMAL DOXORUBICIN HYDROCHLORIDE [Concomitant]
     Active Substance: DOXORUBICIN HYDROCHLORIDE
     Route: 065
  14. VINDESINE [Concomitant]
     Active Substance: VINDESINE
     Dosage: DAY 1
     Route: 065
     Dates: start: 20191030
  15. MABTHERA [Suspect]
     Active Substance: RITUXIMAB
     Indication: DIFFUSE LARGE B-CELL LYMPHOMA
     Dosage: DAY 3
     Route: 065
     Dates: start: 20190827
  16. VINDESINE [Concomitant]
     Active Substance: VINDESINE
     Indication: DIFFUSE LARGE B-CELL LYMPHOMA
     Dosage: DAY 1-2
     Route: 065
     Dates: start: 20190827
  17. VINDESINE [Concomitant]
     Active Substance: VINDESINE
     Route: 065
     Dates: start: 20191120
  18. CYCLOPHOSPHAMIDE. [Concomitant]
     Active Substance: CYCLOPHOSPHAMIDE
     Indication: DIFFUSE LARGE B-CELL LYMPHOMA
     Dosage: DAY 1-2
     Route: 065
     Dates: start: 20190827
  19. LIPOSOMAL DOXORUBICIN HYDROCHLORIDE [Concomitant]
     Active Substance: DOXORUBICIN HYDROCHLORIDE
     Indication: DIFFUSE LARGE B-CELL LYMPHOMA
     Dosage: 20MG DAY 1, 40MG DAY 2
     Route: 065
     Dates: start: 20190827
  20. LIPOSOMAL DOXORUBICIN HYDROCHLORIDE [Concomitant]
     Active Substance: DOXORUBICIN HYDROCHLORIDE
     Dosage: DAY 1
     Route: 065
     Dates: start: 20191030
  21. VINDESINE [Concomitant]
     Active Substance: VINDESINE
     Dosage: DAY 1
     Route: 065
     Dates: start: 20191011
  22. PREDNISONE. [Concomitant]
     Active Substance: PREDNISONE
     Dosage: DAY 1-5
     Route: 065
     Dates: start: 20191011
  23. PREDNISONE. [Concomitant]
     Active Substance: PREDNISONE
     Route: 065
     Dates: start: 20191120
  24. CYCLOPHOSPHAMIDE. [Concomitant]
     Active Substance: CYCLOPHOSPHAMIDE
     Dosage: DAY 1
     Route: 065
     Dates: start: 20190917
  25. LIPOSOMAL DOXORUBICIN HYDROCHLORIDE [Concomitant]
     Active Substance: DOXORUBICIN HYDROCHLORIDE
     Route: 065
     Dates: start: 20191120
  26. MABTHERA [Suspect]
     Active Substance: RITUXIMAB
     Dosage: DAY 0
     Route: 065
     Dates: start: 20191011
  27. CYCLOPHOSPHAMIDE. [Concomitant]
     Active Substance: CYCLOPHOSPHAMIDE
     Dosage: DAY 1
     Route: 065
     Dates: start: 20191011
  28. PREDNISONE. [Concomitant]
     Active Substance: PREDNISONE
     Route: 065
     Dates: start: 20191211
  29. MABTHERA [Suspect]
     Active Substance: RITUXIMAB
     Route: 065
     Dates: start: 20191120
  30. PREDNISONE. [Concomitant]
     Active Substance: PREDNISONE
     Indication: DIFFUSE LARGE B-CELL LYMPHOMA
     Dosage: DAY 1-5
     Route: 065
     Dates: start: 20190827
  31. PREDNISONE. [Concomitant]
     Active Substance: PREDNISONE
     Dosage: DAY 1-5
     Route: 065
     Dates: start: 20190917

REACTIONS (5)
  - Pyrexia [Unknown]
  - Agranulocytosis [Unknown]
  - Platelet count decreased [Unknown]
  - Bone marrow disorder [Unknown]
  - Enteritis infectious [Unknown]
